FAERS Safety Report 11553416 (Version 1)
Quarter: 2015Q3

REPORT INFORMATION
  Report Type: Spontaneous
  Country: JP (occurrence: JP)
  Receive Date: 20150925
  Receipt Date: 20150925
  Transmission Date: 20151125
  Serious: Yes (Death)
  Sender: FDA-Public Use
  Company Number: JP-TEVA-595320ISR

PATIENT
  Sex: Female
  Weight: 30 kg

DRUGS (5)
  1. E-FEN BUCCAL [Suspect]
     Active Substance: FENTANYL CITRATE
     Indication: BREAKTHROUGH PAIN
     Dosage: 300 MICROGRAM DAILY;
     Route: 002
     Dates: start: 20150417, end: 20150417
  2. E-FEN BUCCAL [Suspect]
     Active Substance: FENTANYL CITRATE
     Dosage: DAILY DOSE: 200 MICROG - 600 MICROG
     Route: 002
     Dates: start: 20150417, end: 20150426
  3. E-FEN BUCCAL [Suspect]
     Active Substance: FENTANYL CITRATE
     Route: 002
     Dates: start: 20150417, end: 20150508
  4. FENTANYL. [Concomitant]
     Active Substance: FENTANYL
     Indication: CANCER PAIN
     Dosage: 8.4 MILLIGRAM DAILY;
     Route: 062
     Dates: end: 20150511
  5. LENDORMIN D [Concomitant]
     Active Substance: BROTIZOLAM
     Dosage: .25 MILLIGRAM DAILY;
     Route: 048
     Dates: start: 20141104, end: 20150511

REACTIONS (1)
  - Colorectal cancer [Fatal]
